FAERS Safety Report 13109723 (Version 4)
Quarter: 2019Q1

REPORT INFORMATION
  Report Type: Spontaneous
  Country: US (occurrence: US)
  Receive Date: 20170112
  Receipt Date: 20190318
  Transmission Date: 20190417
  Serious: No
  Sender: FDA-Public Use
  Company Number: US-PFIZER INC-2016491928

PATIENT
  Age: 43 Year
  Sex: Female
  Weight: 84 kg

DRUGS (5)
  1. BIOTIN [Concomitant]
     Active Substance: BIOTIN
     Indication: ALOPECIA
     Dosage: 1000 MG, DAILY (TAKES 4-6 TABLETS A DAY TAKING IT MIDDAY)
     Dates: start: 201407
  2. XELJANZ [Suspect]
     Active Substance: TOFACITINIB CITRATE
     Indication: ALOPECIA
     Dosage: 5 MG, TWICE A DAY (TAKE 1 TABLET TWICE A DAY AS DIRECT)
     Route: 048
     Dates: start: 20160807
  3. XELJANZ [Suspect]
     Active Substance: TOFACITINIB CITRATE
     Indication: RHEUMATOID ARTHRITIS
  4. SPIRONOLACTONE. [Concomitant]
     Active Substance: SPIRONOLACTONE
     Indication: SWELLING
     Dosage: 50 MG, 1X/DAY
     Route: 048
     Dates: start: 201409
  5. SAW PALMETTO [SERENOA REPENS] [Concomitant]
     Indication: ALOPECIA
     Dosage: 2-3 CAPSULES, 1X/DAY (ONCE A DAY)
     Route: 048
     Dates: start: 201407

REACTIONS (6)
  - Disease recurrence [Unknown]
  - Malaise [Not Recovered/Not Resolved]
  - Dizziness [Unknown]
  - Speech disorder [Unknown]
  - Lung disorder [Unknown]
  - Laryngitis [Unknown]
